FAERS Safety Report 7896888-2 (Version None)
Quarter: 2011Q4

REPORT INFORMATION
  Report Type: 
  Country: None (occurrence: None)
  Receive Date: 20111107
  Receipt Date: 20111028
  Transmission Date: 20120403
  Serious: Yes (Hospitalization)
  Sender: FDA-Public Use
  Company Number: IT-BAYER-2011-105984

PATIENT
  Age: 42 Year
  Sex: Male

DRUGS (4)
  1. CIPROFLAXACIN [Suspect]
     Indication: EAR INFECTION
     Dosage: DAILY DOSE 1 G
     Route: 048
     Dates: start: 20110911, end: 20110914
  2. KETOPROFEN [Concomitant]
     Indication: MUSCLE INJURY
     Dosage: UNK
  3. BETAFLOROTO [Concomitant]
     Indication: EAR INFECTION
     Dosage: DAILY DOSE 8 GTT
     Route: 001
     Dates: start: 20110911, end: 20110914
  4. ACETAMINOPHEN [Concomitant]
     Indication: EAR INFECTION
     Dosage: DAILY DOSE 500 MG

REACTIONS (2)
  - TUBULOINTERSTITIAL NEPHRITIS [None]
  - BRADYARRHYTHMIA [None]
